FAERS Safety Report 8377174-3 (Version None)
Quarter: 2012Q2

REPORT INFORMATION
  Report Type: 
  Country: None (occurrence: None)
  Receive Date: 20120522
  Receipt Date: 20120509
  Transmission Date: 20120825
  Serious: Yes (Hospitalization, Other)
  Sender: FDA-Public Use
  Company Number: CA-ROCHE-GNE254330

PATIENT
  Sex: Male
  Weight: 75.08 kg

DRUGS (5)
  1. VACCINES NOS [Suspect]
     Indication: PRODUCT USED FOR UNKNOWN INDICATION
  2. FENOTEROL [Suspect]
     Indication: PRODUCT USED FOR UNKNOWN INDICATION
  3. OMALIZUMAB [Suspect]
     Indication: ASTHMA
     Dosage: 300 MG, Q2W
     Route: 058
     Dates: start: 20070910
  4. OMALIZUMAB [Suspect]
     Dosage: 300 MG, Q2W
     Route: 058
     Dates: start: 20090623
  5. NASONEX [Concomitant]
     Indication: PRODUCT USED FOR UNKNOWN INDICATION

REACTIONS (11)
  - EAR INFECTION [None]
  - SINUSITIS [None]
  - NASAL OPERATION [None]
  - ADENOIDECTOMY [None]
  - HYPERTENSION [None]
  - BLOOD PRESSURE INCREASED [None]
  - INFECTION [None]
  - DYSGEUSIA [None]
  - SINUS CONGESTION [None]
  - DYSPNOEA [None]
  - HEART RATE IRREGULAR [None]
